FAERS Safety Report 5674845-4 (Version None)
Quarter: 2008Q1

REPORT INFORMATION
  Report Type: 
  Country: None (occurrence: None)
  Receive Date: 20080319
  Receipt Date: 20080319
  Transmission Date: 20080703
  Serious: Yes (Hospitalization)
  Sender: FDA-Public Use
  Company Number: None

PATIENT
  Age: 56 Year
  Sex: Female
  Weight: 54.4316 kg

DRUGS (1)
  1. GENERIC ACTONEL 10 MG [Suspect]
     Indication: BONE DENSITY DECREASED
     Dosage: 10 MG WEEKLY PO
     Route: 048
     Dates: start: 20070101, end: 20071231

REACTIONS (1)
  - BACK PAIN [None]
